FAERS Safety Report 8743895 (Version 2)
Quarter: 2013Q4

REPORT INFORMATION
  Report Type: Spontaneous
  Country: US (occurrence: US)
  Receive Date: 20120824
  Receipt Date: 20131101
  Transmission Date: 20140711
  Serious: No
  Sender: FDA-Public Use
  Company Number: US-009507513-1208USA006299

PATIENT
  Sex: Male

DRUGS (3)
  1. MIRALAX [Suspect]
     Indication: PRODUCT USED FOR UNKNOWN INDICATION
     Dosage: 12.75 G, UNKNOWN
     Route: 048
     Dates: start: 201207
  2. MIRALAX [Suspect]
     Dosage: 17 G, UNKNOWN
     Route: 048
     Dates: start: 201207
  3. MIRALAX [Suspect]
     Dosage: UNK UNK, UNKNOWN
     Route: 048
     Dates: start: 2010

REACTIONS (3)
  - Abdominal pain upper [Unknown]
  - Diarrhoea [Recovered/Resolved]
  - Incorrect drug administration duration [Unknown]
